FAERS Safety Report 21591574 (Version 1)
Quarter: 2022Q4

REPORT INFORMATION
  Report Type: Spontaneous
  Country: CN (occurrence: CN)
  Receive Date: 20221114
  Receipt Date: 20221114
  Transmission Date: 20230113
  Serious: Yes (Hospitalization)
  Sender: FDA-Public Use
  Company Number: None

PATIENT
  Age: 34 Year
  Sex: Female
  Weight: 62 kg

DRUGS (4)
  1. CYCLOPHOSPHAMIDE [Suspect]
     Active Substance: CYCLOPHOSPHAMIDE
     Indication: Breast cancer female
     Dosage: 1 G, ONCE EVERY 21 DAYS, DILUTED WITH 0.9% SODIUM CHLORIDE INJECTION 100 ML
     Route: 041
     Dates: start: 20221002, end: 20221002
  2. SODIUM CHLORIDE [Suspect]
     Active Substance: SODIUM CHLORIDE
     Indication: Medication dilution
     Dosage: 100 ML, ONCE EVERY 21 DAYS, USED TO DILUTE 160 MG OF EPIRUBICIN HYDROCHLORIDE
     Route: 041
     Dates: start: 20221002, end: 20221002
  3. SODIUM CHLORIDE [Concomitant]
     Active Substance: SODIUM CHLORIDE
     Indication: Vehicle solution use
     Dosage: 100 ML, ONCE EVERY 21 DAYS, USED TO DILUTE 1 G OF CYCLOPHOSPHAMIDE
     Route: 041
     Dates: start: 20221002, end: 20221002
  4. EPIRUBICIN HYDROCHLORIDE [Concomitant]
     Active Substance: EPIRUBICIN HYDROCHLORIDE
     Indication: Breast cancer female
     Dosage: 160 MG, ONCE EVERY 21 DAYS, DILUTED WITH 0.9% SODIUM CHLORIDE INJECTION 100 ML
     Route: 041
     Dates: start: 20221002, end: 20221002

REACTIONS (1)
  - Hepatic function abnormal [Recovering/Resolving]

NARRATIVE: CASE EVENT DATE: 20221023
